APPROVED DRUG PRODUCT: ATENOLOL
Active Ingredient: ATENOLOL
Strength: 50MG
Dosage Form/Route: TABLET;ORAL
Application: A074120 | Product #001
Applicant: TEVA PHARMACEUTICALS USA
Approved: Feb 24, 1995 | RLD: No | RS: No | Type: DISCN